FAERS Safety Report 15765655 (Version 2)
Quarter: 2019Q2

REPORT INFORMATION
  Report Type: Spontaneous
  Country: US (occurrence: US)
  Receive Date: 20181227
  Receipt Date: 20190521
  Transmission Date: 20190711
  Serious: Yes (Other)
  Sender: FDA-Public Use
  Company Number: US-SA-2018SA389018

PATIENT
  Sex: Female

DRUGS (4)
  1. TAXOTERE [Suspect]
     Active Substance: DOCETAXEL
     Dosage: UNK UNK, UNK
     Route: 042
     Dates: start: 201008, end: 201008
  2. TAXOTERE [Suspect]
     Active Substance: DOCETAXEL
     Dosage: UNK UNK, UNK
     Route: 042
     Dates: start: 201012, end: 201012
  3. CARBOPLATIN. [Concomitant]
     Active Substance: CARBOPLATIN
  4. HERCEPTIN [Concomitant]
     Active Substance: TRASTUZUMAB

REACTIONS (1)
  - Alopecia [Not Recovered/Not Resolved]
